FAERS Safety Report 6379311-9 (Version None)
Quarter: 2009Q3

REPORT INFORMATION
  Report Type: 
  Country: None (occurrence: None)
  Receive Date: 20090923
  Receipt Date: 20090923
  Transmission Date: 20100115
  Serious: Yes (Hospitalization)
  Sender: FDA-Public Use
  Company Number: None

PATIENT
  Age: 67 Year
  Sex: Female
  Weight: 42.3 kg

DRUGS (10)
  1. WARFARIN [Suspect]
     Indication: CEREBROVASCULAR ACCIDENT
     Dosage: 2.5MG PO QD; HOME
  2. WARFARIN [Suspect]
     Indication: CORONARY ARTERY DISEASE
     Dosage: 2.5MG PO QD; HOME
  3. COREG [Concomitant]
  4. BUSPAR [Concomitant]
  5. COLACE [Concomitant]
  6. FOSAMAX [Concomitant]
  7. HYDROCHLOROTHIAZIDE [Concomitant]
  8. LIDOCAINE [Concomitant]
  9. LIPITOR [Concomitant]
  10. PAXIL [Concomitant]

REACTIONS (3)
  - DECREASED APPETITE [None]
  - EPISTAXIS [None]
  - INTERNATIONAL NORMALISED RATIO INCREASED [None]
